FAERS Safety Report 25274348 (Version 2)
Quarter: 2025Q2

REPORT INFORMATION
  Report Type: Report from Study
  Country: CA (occurrence: CA)
  Receive Date: 20250506
  Receipt Date: 20250516
  Transmission Date: 20250716
  Serious: Yes (Other)
  Sender: SANDOZ
  Company Number: CA-SANDOZ-SDZ2024CA048144

PATIENT
  Sex: Female

DRUGS (1)
  1. FULVESTRANT [Suspect]
     Active Substance: FULVESTRANT
     Indication: Breast cancer metastatic
     Dosage: 250 MG, Q2W (0, 14, 28 DAYS)
     Route: 065
     Dates: start: 20240409

REACTIONS (4)
  - Brain neoplasm [Unknown]
  - Memory impairment [Unknown]
  - Confusional state [Unknown]
  - Malaise [Unknown]
